FAERS Safety Report 15410823 (Version 1)
Quarter: 2018Q3

REPORT INFORMATION
  Report Type: Spontaneous
  Country: US (occurrence: US)
  Receive Date: 20180919
  Receipt Date: 20180919
  Transmission Date: 20181010
  Serious: Yes (Death)
  Sender: FDA-Public Use
  Company Number: None

PATIENT
  Age: 57 Year
  Sex: Male

DRUGS (8)
  1. AMLODIPINE [Concomitant]
     Active Substance: AMLODIPINE BESYLATE
  2. PRAVASTATIN. [Concomitant]
     Active Substance: PRAVASTATIN
  3. LISINOPRIL. [Suspect]
     Active Substance: LISINOPRIL
     Indication: HYPERTENSION
     Route: 048
  4. ASPIRIN. [Concomitant]
     Active Substance: ASPIRIN
  5. PRASUGREL. [Concomitant]
     Active Substance: PRASUGREL
  6. LEFLUNOMIDE. [Concomitant]
     Active Substance: LEFLUNOMIDE
  7. CARVEDILOL. [Concomitant]
     Active Substance: CARVEDILOL
  8. ABATACEPT [Concomitant]
     Active Substance: ABATACEPT

REACTIONS (5)
  - Throat tightness [None]
  - Dyspnoea [None]
  - Product quality issue [None]
  - Endotracheal intubation complication [None]
  - Cardiac arrest [None]

NARRATIVE: CASE EVENT DATE: 20180307
